FAERS Safety Report 10482891 (Version 1)
Quarter: 2014Q3

REPORT INFORMATION
  Report Type: Report from Study
  Country: BR (occurrence: BR)
  Receive Date: 20140929
  Receipt Date: 20140929
  Transmission Date: 20150326
  Serious: Yes (Other)
  Sender: FDA-Public Use
  Company Number: PHHY2014BR127215

PATIENT
  Sex: Female
  Weight: 62 kg

DRUGS (3)
  1. EXELON PATCH [Suspect]
     Active Substance: RIVASTIGMINE
     Dosage: 13.3 MG (PATCH 15CM2), DAILY
     Route: 062
  2. EXELON PATCH [Suspect]
     Active Substance: RIVASTIGMINE
     Indication: MEMORY IMPAIRMENT
     Dosage: 4.6 MG (PATCH 5CM2), DAILY
     Route: 062
  3. EXELON PATCH [Suspect]
     Active Substance: RIVASTIGMINE
     Dosage: 9.5 MG (PATCH 10 CM2), DAILY
     Route: 062

REACTIONS (22)
  - Thrombophlebitis superficial [Unknown]
  - Wrist fracture [Unknown]
  - Loss of consciousness [Unknown]
  - Uterine disorder [Unknown]
  - Pneumonia [Unknown]
  - Vaginal discharge [Unknown]
  - Limb deformity [Unknown]
  - Emotional disorder [Unknown]
  - Depression [Unknown]
  - Cough [Unknown]
  - Fear [Unknown]
  - Malaise [Unknown]
  - Deep vein thrombosis [Unknown]
  - Memory impairment [Unknown]
  - Upper limb fracture [Unknown]
  - Convulsion [Unknown]
  - Transient ischaemic attack [Unknown]
  - Speech disorder [Unknown]
  - Neoplasm malignant [Unknown]
  - Fall [Unknown]
  - Coagulopathy [Unknown]
  - Movement disorder [Unknown]
